FAERS Safety Report 4871283-9 (Version None)
Quarter: 2005Q4

REPORT INFORMATION
  Report Type: 
  Country: None (occurrence: None)
  Receive Date: 20051229
  Receipt Date: 20051214
  Transmission Date: 20060501
  Serious: Yes (Life-Threatening)
  Sender: FDA-Public Use
  Company Number: 2005-134972-NL

PATIENT
  Age: 6 Month
  Sex: Female
  Weight: 0.481 kg

DRUGS (1)
  1. NUVARING [Suspect]
     Dosage: TRANSPLACENTAL
     Route: 064

REACTIONS (11)
  - APGAR SCORE LOW [None]
  - BRONCHOPULMONARY DYSPLASIA [None]
  - CAESAREAN SECTION [None]
  - CARDIAC MURMUR [None]
  - CHRONIC RESPIRATORY DISEASE [None]
  - CONGENITAL HEARING DISORDER [None]
  - DRUG EXPOSURE DURING PREGNANCY [None]
  - JAUNDICE NEONATAL [None]
  - NEONATAL RESPIRATORY DISTRESS SYNDROME [None]
  - PREMATURE BABY [None]
  - RETINOPATHY CONGENITAL [None]
